FAERS Safety Report 6888386-X (Version None)
Quarter: 2010Q3

REPORT INFORMATION
  Report Type: 
  Country: None (occurrence: None)
  Receive Date: 20100730
  Receipt Date: 20100721
  Transmission Date: 20110219
  Serious: Yes (Hospitalization)
  Sender: FDA-Public Use
  Company Number: JP-ROCHE-684663

PATIENT
  Sex: Female
  Weight: 51 kg

DRUGS (36)
  1. TOCILIZUMAB [Suspect]
     Indication: RHEUMATOID ARTHRITIS
     Route: 041
     Dates: start: 20090408, end: 20090408
  2. TOCILIZUMAB [Suspect]
     Route: 041
     Dates: start: 20090507, end: 20090507
  3. TOCILIZUMAB [Suspect]
     Route: 041
     Dates: start: 20090604, end: 20090604
  4. TOCILIZUMAB [Suspect]
     Route: 041
     Dates: start: 20090702, end: 20090702
  5. TOCILIZUMAB [Suspect]
     Route: 041
     Dates: start: 20090730, end: 20090730
  6. TOCILIZUMAB [Suspect]
     Route: 041
     Dates: start: 20090826, end: 20090826
  7. TOCILIZUMAB [Suspect]
     Dosage: STOP DATE: 2009
     Route: 041
     Dates: start: 20090924, end: 20090924
  8. TOCILIZUMAB [Suspect]
     Dosage: DOSAGE UNCERTAIN
     Route: 041
     Dates: start: 20091216, end: 20091216
  9. TOCILIZUMAB [Suspect]
     Dosage: DOSAGE UNCERTAIN
     Route: 041
     Dates: start: 20100129, end: 20100129
  10. TOCILIZUMAB [Suspect]
     Dosage: DOSAGE UNCERTAIN
     Route: 041
     Dates: start: 20100226
  11. PROGRAF [Concomitant]
     Route: 048
  12. PROGRAF [Concomitant]
     Dosage: DRUG REPORTED AS: PROGRAF(TACROLIMS HYDRATE)
     Route: 048
     Dates: start: 20100126
  13. PROGRAF [Concomitant]
     Route: 048
     Dates: start: 20100424, end: 20100513
  14. PROGRAF [Concomitant]
     Route: 048
     Dates: start: 20100424, end: 20100513
  15. PREDNISOLONE [Concomitant]
     Route: 048
  16. PREDNISOLONE [Concomitant]
     Route: 048
     Dates: start: 20100125
  17. PREDNISOLONE [Concomitant]
     Route: 048
     Dates: start: 20100501, end: 20100505
  18. PREDNISOLONE [Concomitant]
     Route: 048
     Dates: start: 20100506, end: 20100513
  19. PREDNISOLONE [Concomitant]
     Route: 048
     Dates: start: 20100506, end: 20100513
  20. LOXONIN [Concomitant]
     Dosage: DRUG REPORTED AS: LOXONIN(LOXOPROFEN SODIUM)
     Route: 048
  21. METHYCOBAL [Concomitant]
     Route: 048
  22. METHYCOBAL [Concomitant]
     Route: 048
     Dates: start: 20100126
  23. MUCOSTA [Concomitant]
     Route: 048
  24. VOLTAREN [Concomitant]
     Dosage: DRUG: VOLTAREN(DICLOFENAC SODIUM) DOSE FORM: SUPPOSITORIAE RECTALE NOTE: TAKEN AS NEEDED
     Route: 054
  25. KETOPROFEN [Concomitant]
     Dosage: DOSE FORM: TAPE NOTE: TAKEN AS NEEDED
     Route: 061
  26. GLUFAST [Concomitant]
     Dosage: DRUG REPORTED AS: GLUFAST(MITIGLINIDE CALCIUM HYDRATE)
     Route: 048
  27. LIPITOR [Concomitant]
     Dosage: DRUG REPORTED AS: LIPITOR(ATORVASTATIN CALCIUM)
     Route: 048
  28. MICARDIS [Concomitant]
     Route: 048
     Dates: end: 20100101
  29. MICARDIS [Concomitant]
     Route: 048
     Dates: start: 20100126
  30. CEFMETAZOLE SODIUM [Concomitant]
     Dosage: DRUG: PIRETAZOL(CEFMETAZOLE SODIUM), ROUTE: INTRAVENOUS (NOT OTHERWISE SPECIFIED).
     Route: 042
     Dates: start: 20100424, end: 20100506
  31. ISEPAMICIN SULFATE [Concomitant]
     Dosage: DRUG: ISECIN(ISEPAMICIN SULFATE)
     Route: 042
     Dates: start: 20100424, end: 20100424
  32. BISOLVON [Concomitant]
     Dosage: DRUG: BISOLVON(BROMHEXINE HYDROCHLORIDE)
     Route: 042
  33. PREDONINE [Concomitant]
     Dosage: DRUG: PREDONINE(PREDNISOLONE ACETATE)
     Route: 042
     Dates: start: 20100424, end: 20100428
  34. PREDONINE [Concomitant]
     Route: 042
     Dates: start: 20100429, end: 20100430
  35. MELBIN [Concomitant]
     Route: 048
     Dates: start: 20100430, end: 20100513
  36. AMLODIPINE BESYLATE [Concomitant]
     Route: 048
     Dates: start: 20100430, end: 20100513

REACTIONS (4)
  - C-REACTIVE PROTEIN INCREASED [None]
  - PLEURISY [None]
  - PNEUMONIA [None]
  - THROMBOCYTOPENIA [None]
